FAERS Safety Report 4694107-1 (Version None)
Quarter: 2005Q2

REPORT INFORMATION
  Report Type: 
  Country: None (occurrence: None)
  Receive Date: 20050614
  Receipt Date: 20050210
  Transmission Date: 20051028
  Serious: No
  Sender: FDA-Public Use
  Company Number: USA050290508

PATIENT
  Age: 73 Year
  Sex: Male

DRUGS (6)
  1. CIALIS [Suspect]
     Indication: ERECTILE DYSFUNCTION
     Dosage: 20 MG
  2. LIPITOR [Concomitant]
  3. ASPIRIN [Concomitant]
  4. OMEGA - 3 FISH OIL [Concomitant]
  5. ZANTAC [Concomitant]
  6. VITAMINS NOS [Concomitant]

REACTIONS (1)
  - THERAPEUTIC RESPONSE DECREASED [None]
